FAERS Safety Report 4822579-8 (Version None)
Quarter: 2005Q4

REPORT INFORMATION
  Report Type: 
  Country: None (occurrence: None)
  Receive Date: 20051104
  Receipt Date: 20051025
  Transmission Date: 20060501
  Serious: Yes (Other)
  Sender: FDA-Public Use
  Company Number: 2005RR-01003

PATIENT
  Sex: Female

DRUGS (3)
  1. CODEINE PHOSPHATE TABLET 30MG BP(CODEINE PHOSPHATE) UNKNOWN [Suspect]
     Indication: HEADACHE
     Dosage: 6 TABLETS PER DAY, ORAL
     Route: 048
  2. PARACETAMOL TABLETS BP 500MG(PARACETAMOL) UNKNOWN [Suspect]
     Indication: HEADACHE
     Dosage: 6 TABLETS PER DAY, ORAL
     Route: 048
  3. CAFFEINE(CAFFEINE) [Suspect]
     Indication: HEADACHE
     Dosage: 6 TABLETS PER DAY

REACTIONS (2)
  - DRUG ABUSER [None]
  - PERFORMANCE STATUS DECREASED [None]
